FAERS Safety Report 5573668-4 (Version None)
Quarter: 2007Q4

REPORT INFORMATION
  Report Type: 
  Country: None (occurrence: None)
  Receive Date: 20071220
  Receipt Date: 20071212
  Transmission Date: 20080405
  Serious: Yes (Hospitalization)
  Sender: FDA-Public Use
  Company Number: 2007BI026490

PATIENT
  Age: 54 Year
  Sex: Female

DRUGS (1)
  1. AVONEX [Suspect]
     Indication: MULTIPLE SCLEROSIS
     Dosage: 30UG;QW;IM
     Route: 030
     Dates: start: 19960601, end: 20071206

REACTIONS (4)
  - EXOSTOSIS [None]
  - HYPOAESTHESIA [None]
  - PAIN IN EXTREMITY [None]
  - SPINAL FUSION SURGERY [None]
